FAERS Safety Report 10573449 (Version 1)
Quarter: 2014Q4

REPORT INFORMATION
  Report Type: Spontaneous
  Country: CN (occurrence: None)
  Receive Date: 20141030
  Receipt Date: 20141030
  Transmission Date: 20150529
  Serious: Yes (Hospitalization, Other)
  Sender: FDA-Public Use
  Company Number: PHHY2011CN83792

PATIENT
  Age: 56 Year
  Sex: Female

DRUGS (1)
  1. SEBIVO [Suspect]
     Active Substance: TELBIVUDINE
     Indication: CHRONIC HEPATITIS B
     Route: 048
     Dates: start: 20100828

REACTIONS (5)
  - Musculoskeletal stiffness [None]
  - Blood creatine phosphokinase increased [None]
  - Myalgia [None]
  - Myopathy [None]
  - Muscular weakness [None]

NARRATIVE: CASE EVENT DATE: 20110921
